FAERS Safety Report 8907278 (Version 1)
Quarter: 2012Q4

REPORT INFORMATION
  Report Type: 
  Country: GB (occurrence: GB)
  Receive Date: 20121113
  Receipt Date: 20121113
  Transmission Date: 20130627
  Serious: Yes (Other)
  Sender: FDA-Public Use
  Company Number: GB-WATSON-2012-19178

PATIENT
  Age: 30 Year
  Sex: Male
  Weight: 60 kg

DRUGS (1)
  1. LEVETIRACETAM (UNKNOWN) [Suspect]
     Indication: PRODUCT USED FOR UNKNOWN INDICATION
     Dosage: UNK
     Route: 065

REACTIONS (2)
  - Dental caries [Not Recovered/Not Resolved]
  - Tooth loss [Not Recovered/Not Resolved]
